FAERS Safety Report 10490994 (Version 1)
Quarter: 2014Q4

REPORT INFORMATION
  Report Type: Spontaneous
  Country: US (occurrence: US)
  Receive Date: 20141002
  Receipt Date: 20141002
  Transmission Date: 20150528
  Serious: No
  Sender: FDA-Public Use
  Company Number: US-GLAXOSMITHKLINE-A1045578A

PATIENT
  Age: 61 Year
  Sex: Female

DRUGS (1)
  1. ADVAIR HFA [Suspect]
     Active Substance: FLUTICASONE PROPIONATE\SALMETEROL XINAFOATE
     Indication: ASTHMA
     Route: 055
     Dates: start: 2007

REACTIONS (4)
  - Malaise [Unknown]
  - Speech disorder [Unknown]
  - Product quality issue [Unknown]
  - Hypopnoea [Unknown]

NARRATIVE: CASE EVENT DATE: 201310
